FAERS Safety Report 13814911 (Version 1)
Quarter: 2017Q3

REPORT INFORMATION
  Report Type: Spontaneous
  Country: FR (occurrence: FR)
  Receive Date: 20170731
  Receipt Date: 20170731
  Transmission Date: 20171127
  Serious: Yes (Death, Life-Threatening, Hospitalization, Other)
  Sender: FDA-Public Use
  Company Number: FR-MEDA-2017070058

PATIENT
  Age: 63 Year
  Sex: Female

DRUGS (7)
  1. ZOLPIDEM [Suspect]
     Active Substance: ZOLPIDEM\ZOLPIDEM TARTRATE
  2. SEVIKAR 10 MG [Suspect]
     Active Substance: AMLODIPINE BESYLATE\OLMESARTAN MEDOXOMIL
     Dosage: 129 TABLETS, 1.29 G OF AMLODIPINE AND 5.16 G OF OLMESARTAN
     Route: 048
  3. SEROPLEX 10 MG [Suspect]
     Active Substance: ESCITALOPRAM OXALATE
     Route: 048
  4. ATARAX [Suspect]
     Active Substance: HYDROXYZINE HYDROCHLORIDE
     Route: 048
  5. LYSANXIA 10 MG [Suspect]
     Active Substance: PRAZEPAM
     Route: 048
  6. NORDAZEPAM [Suspect]
     Active Substance: NORDAZEPAM
  7. CITALOPRAM [Suspect]
     Active Substance: CITALOPRAM HYDROBROMIDE

REACTIONS (14)
  - Multiple organ dysfunction syndrome [Fatal]
  - Hyperlactacidaemia [Fatal]
  - Bezoar [Fatal]
  - Overdose [Fatal]
  - Skin necrosis [Fatal]
  - Hepatic failure [Fatal]
  - Acute kidney injury [Fatal]
  - Metabolic acidosis [Fatal]
  - Shock [Fatal]
  - Cardiogenic shock [Fatal]
  - Toxicity to various agents [Fatal]
  - Intentional overdose [Fatal]
  - Gastrointestinal ischaemia [Fatal]
  - Coma [Fatal]
